FAERS Safety Report 5252446-X (Version None)
Quarter: 2007Q1

REPORT INFORMATION
  Report Type: 
  Country: None (occurrence: None)
  Receive Date: 20070301
  Receipt Date: 20070131
  Transmission Date: 20070707
  Serious: Yes (Life-Threatening, Hospitalization)
  Sender: FDA-Public Use
  Company Number: US-BRISTOL-MYERS SQUIBB COMPANY-13577762

PATIENT
  Age: 70 Year
  Sex: Female

DRUGS (9)
  1. ERBITUX [Suspect]
     Indication: COLON CANCER
     Route: 042
     Dates: start: 20060906, end: 20060906
  2. ESTRATEST [Concomitant]
     Route: 048
  3. PREVACID [Concomitant]
  4. PAXIL [Concomitant]
  5. POTASSIUM ACETATE [Concomitant]
  6. TYLENOL [Concomitant]
     Indication: PREMEDICATION
     Dates: start: 20060906, end: 20060906
  7. BENADRYL [Concomitant]
     Indication: PREMEDICATION
     Dates: start: 20060906, end: 20060906
  8. SOLU-MEDROL [Concomitant]
     Indication: PREMEDICATION
     Dates: start: 20060906, end: 20060906
  9. KYTRIL [Concomitant]
     Indication: PREMEDICATION
     Dates: start: 20060906, end: 20060906

REACTIONS (1)
  - RESPIRATORY ARREST [None]
